FAERS Safety Report 11096967 (Version 2)
Quarter: 2015Q3

REPORT INFORMATION
  Report Type: Spontaneous
  Country: FR (occurrence: FR)
  Receive Date: 20150507
  Receipt Date: 20150717
  Transmission Date: 20151125
  Serious: Yes (Death, Life-Threatening, Hospitalization)
  Sender: FDA-Public Use
  Company Number: FR-ASTRAZENECA-2015SE40955

PATIENT
  Age: 30611 Day
  Sex: Male

DRUGS (9)
  1. LEXOMIL ROCHE [Suspect]
     Active Substance: BROMAZEPAM
     Indication: ANXIETY DISORDER
     Dosage: NON-ASTRAZENECA PRODUCT, 0.25 DF AT NIGHT
     Route: 048
  2. ESIDREX [Suspect]
     Active Substance: HYDROCHLOROTHIAZIDE
     Indication: HYPERTENSION
     Dosage: NON-ASTRAZENECA PRODUCT
     Route: 048
     Dates: end: 20150223
  3. KARDEGIC [Suspect]
     Active Substance: ASPIRIN LYSINE
     Indication: VASCULAR OPERATION
     Route: 048
  4. SYMBICORT [Suspect]
     Active Substance: BUDESONIDE\FORMOTEROL FUMARATE DIHYDRATE
     Route: 055
  5. BETAHISTINE (CHLORHYDRATE) [Suspect]
     Active Substance: BETAHISTINE HYDROCHLORIDE
     Route: 048
  6. BISOPROLOL (FUMARATE ACID) [Suspect]
     Active Substance: BISOPROLOL FUMARATE
     Indication: HYPERTENSION
     Route: 048
  7. TELMISARTAN. [Suspect]
     Active Substance: TELMISARTAN
     Indication: HYPERTENSION
     Route: 048
  8. PREVISCAN [Suspect]
     Active Substance: FLUINDIONE
     Indication: ATRIAL FIBRILLATION
     Dosage: 20 MG, 0.5 DF EVERY EVEN DAYS AND 0.25 DF EVERY ODD DAYS
     Route: 048
     Dates: start: 201412
  9. PRAVASTATINE SODIC [Suspect]
     Active Substance: PRAVASTATIN SODIUM
     Indication: HYPERCHOLESTEROLAEMIA
     Route: 048

REACTIONS (6)
  - Peripheral ischaemia [Unknown]
  - Death [Fatal]
  - Atrial fibrillation [Unknown]
  - Toxic skin eruption [Not Recovered/Not Resolved]
  - Sensorimotor disorder [Unknown]
  - Cardio-respiratory arrest [Unknown]

NARRATIVE: CASE EVENT DATE: 20141121
